FAERS Safety Report 20377680 (Version 2)
Quarter: 2022Q1

REPORT INFORMATION
  Report Type: Report from Study
  Country: GB (occurrence: GB)
  Receive Date: 20220126
  Receipt Date: 20220315
  Transmission Date: 20220423
  Serious: Yes (Hospitalization, Other)
  Sender: FDA-Public Use
  Company Number: GB-CELLTRION INC.-2022GB000659

PATIENT

DRUGS (55)
  1. TRASTUZUMAB [Suspect]
     Active Substance: TRASTUZUMAB
     Indication: Breast cancer metastatic
     Dosage: 490 MG, EVERY 3 WEEKS (CUMULATIVE DOSE TO FIRST REACTION: 1214.3055 MG) DOSE FORM:230
     Route: 041
     Dates: start: 20211029
  2. TRASTUZUMAB [Suspect]
     Active Substance: TRASTUZUMAB
     Dosage: 600 MG, EVERY 3 WEEKS (CUMULATIVE DOSE TO FIRST REACTION: 15686.904 MG) DOSE FORM:231
     Route: 058
     Dates: start: 20200619, end: 20210730
  3. TRASTUZUMAB [Suspect]
     Active Substance: TRASTUZUMAB
     Dosage: 600 MG, EVERY 3 WEEKS (CUMULATIVE DOSE TO FIRST REACTION: 15686.904 MG) DOSE FORM:231
     Route: 058
     Dates: start: 20200619, end: 20210730
  4. TRASTUZUMAB [Suspect]
     Active Substance: TRASTUZUMAB
     Dosage: 600 MG, EVERY 3 WEEKS (CUMULATIVE DOSE TO FIRST REACTION: 62314.285 MG) DOSE FORM:231
     Route: 058
     Dates: start: 20151231, end: 20190308
  5. TRASTUZUMAB [Suspect]
     Active Substance: TRASTUZUMAB
     Dosage: 600 MG, EVERY 3 WEEKS (CUMULATIVE DOSE TO FIRST REACTION: 62314.285 MG) DOSE FORM:231
     Route: 058
     Dates: start: 20151231, end: 20190308
  6. CAPECITABINE [Suspect]
     Active Substance: CAPECITABINE
     Indication: Breast cancer metastatic
     Dosage: 1800 MG, DOSE FORM:245
     Route: 048
     Dates: start: 20200619, end: 20200820
  7. CAPECITABINE [Suspect]
     Active Substance: CAPECITABINE
     Dosage: 1800 MG, DOSE FORM:245
     Route: 048
     Dates: start: 20200619, end: 20200820
  8. CAPECITABINE [Suspect]
     Active Substance: CAPECITABINE
     Dosage: 1800 MG, DOSE FORM:245
     Route: 048
     Dates: start: 20200619, end: 20200820
  9. CAPECITABINE [Suspect]
     Active Substance: CAPECITABINE
     Dosage: 3000 MG, DOSE FORM:245 (CUMULATIVE DOSE TO FIRST REACTION: 1458125.0 MG)
     Route: 048
     Dates: start: 20200821, end: 20210225
  10. CAPECITABINE [Suspect]
     Active Substance: CAPECITABINE
     Dosage: 3000 MG, DOSE FORM:245 (CUMULATIVE DOSE TO FIRST REACTION: 1458125.0 MG)
     Route: 048
     Dates: start: 20200821, end: 20210225
  11. CAPECITABINE [Suspect]
     Active Substance: CAPECITABINE
     Dosage: 3000 MG, DOSE FORM:245 (CUMULATIVE DOSE TO FIRST REACTION: 1458125.0 MG)
     Route: 048
     Dates: start: 20200821, end: 20210225
  12. CAPECITABINE [Suspect]
     Active Substance: CAPECITABINE
     Dosage: 2000 MG, DOSE FORM:245 (CUMULATIVE DOSE TO FIRST REACTION: 594000.0 MG)
     Route: 048
     Dates: start: 20210226, end: 20210813
  13. CAPECITABINE [Suspect]
     Active Substance: CAPECITABINE
     Dosage: 2000 MG, DOSE FORM:245 (CUMULATIVE DOSE TO FIRST REACTION: 594000.0 MG)
     Route: 048
     Dates: start: 20210226, end: 20210813
  14. CAPECITABINE [Suspect]
     Active Substance: CAPECITABINE
     Dosage: 2000 MG, DOSE FORM:245 (CUMULATIVE DOSE TO FIRST REACTION: 594000.0 MG)
     Route: 048
     Dates: start: 20210226, end: 20210813
  15. DOCETAXEL [Suspect]
     Active Substance: DOCETAXEL
     Indication: Breast cancer metastatic
     Dosage: 180 MG, EVERY 3 WEEKS
     Route: 042
     Dates: start: 20151231, end: 20160212
  16. LETROZOLE [Suspect]
     Active Substance: LETROZOLE
     Indication: Breast cancer metastatic
     Dosage: 2.5 MG, QD
     Route: 048
     Dates: start: 20160407, end: 20181129
  17. PACLITAXEL [Suspect]
     Active Substance: PACLITAXEL
     Indication: Breast cancer metastatic
     Dosage: 111 MG, EVERY 3 WEEKS (CUMULATIVE DOSE TO FIRST REACTION:11152.857 MG)
     Route: 042
     Dates: start: 20160311, end: 20160324
  18. TAMOXIFEN [Suspect]
     Active Substance: TAMOXIFEN
     Indication: Breast cancer metastatic
     Dosage: 20 MG, QD (CUMULATIVE DOSE TO FIRST REACTION: 22320.0 MG)
     Route: 048
     Dates: start: 20181130, end: 20190328
  19. ADO-TRASTUZUMAB EMTANSINE [Suspect]
     Active Substance: ADO-TRASTUZUMAB EMTANSINE
     Indication: Breast cancer metastatic
     Dosage: 300 MG, EVERY 3 WEEKS, DOSE FORM:230 (CUMULATIVE DOSE TO FIRST REACTION:14143.452 MG)
     Route: 042
     Dates: start: 20190405, end: 20200515
  20. ACYCLOVIR [Concomitant]
     Active Substance: ACYCLOVIR
     Dosage: UNK
     Route: 065
     Dates: start: 20190606
  21. AMOXICILLIN [Concomitant]
     Active Substance: AMOXICILLIN
     Dosage: 500 MG, DOSE FORM:245
     Route: 048
     Dates: start: 20181224, end: 20190101
  22. BENZYDAMINE [Concomitant]
     Active Substance: BENZYDAMINE
     Dosage: 15 MG
     Route: 065
     Dates: start: 20200710
  23. CARBOMER [Concomitant]
     Active Substance: CARBOMER
     Dosage: UNK
     Route: 047
     Dates: start: 20160706
  24. CARBOMER [Concomitant]
     Active Substance: CARBOMER
     Dosage: UNK
     Route: 065
     Dates: start: 20160831
  25. CETIRIZINE [Concomitant]
     Active Substance: CETIRIZINE HYDROCHLORIDE
     Dosage: 10 MG, DOSE FORM:245
     Route: 048
     Dates: start: 20170911
  26. CHLORHEXIDINE [Concomitant]
     Active Substance: CHLORHEXIDINE
     Dosage: UNK
     Route: 065
     Dates: start: 20200710
  27. HYALURONATE SODIUM [Concomitant]
     Active Substance: HYALURONATE SODIUM
     Dosage: UNK
     Route: 047
     Dates: start: 20191029
  28. CLOBETASONE [Concomitant]
     Active Substance: CLOBETASONE
  29. COCODAMOL [Concomitant]
     Active Substance: ACETAMINOPHEN\CODEINE PHOSPHATE
     Dosage: DOSE FORM: 245
     Route: 048
     Dates: start: 20160211, end: 20180313
  30. ESTRIOL [Concomitant]
     Active Substance: ESTRIOL
     Dosage: DOSE FORM: 17
     Route: 067
     Dates: start: 20150415
  31. EUCALYPTUS OIL [Concomitant]
     Active Substance: EUCALYPTUS OIL
     Dosage: UNK
     Route: 065
     Dates: start: 20191219, end: 20191219
  32. EUMOVATE [Concomitant]
     Active Substance: CLOBETASONE BUTYRATE
     Dosage: DOSE FORM: 17
     Route: 061
     Dates: start: 201904, end: 20190502
  33. EURAX HC [Concomitant]
     Dosage: DOSE FORM: 17
     Route: 061
     Dates: start: 20190516, end: 201906
  34. FEXOFENADINE [Concomitant]
     Active Substance: FEXOFENADINE HYDROCHLORIDE
     Dosage: 180 MG
     Route: 065
     Dates: start: 20170504, end: 20170519
  35. FLUCLOXACILLIN [Concomitant]
     Active Substance: FLUCLOXACILLIN
     Dosage: 500 MG, DOSE FORM:245
     Route: 048
     Dates: start: 20160315
  36. FLUCONAZOLE [Concomitant]
     Active Substance: FLUCONAZOLE
     Dosage: UNK
     Route: 065
     Dates: start: 20160221, end: 20160228
  37. HYALURONIC ACID [Concomitant]
     Active Substance: HYALURONIC ACID
     Dosage: DOSE FORM: 17
     Route: 061
     Dates: start: 20180226
  38. HYDROCORTISONE [Concomitant]
     Active Substance: HYDROCORTISONE
     Dosage: 2.5 MG, DOSE FORM: 245
     Route: 065
     Dates: start: 20200710
  39. HYPROMELLOSES [Concomitant]
     Active Substance: HYPROMELLOSES
     Dosage: UNK
     Route: 065
     Dates: start: 20160831
  40. HERBALS\LAVANDULA ANGUSTIFOLIA WHOLE [Concomitant]
     Active Substance: HERBALS\LAVANDULA ANGUSTIFOLIA WHOLE
     Dosage: UNK
     Route: 061
     Dates: start: 20200117, end: 20200117
  41. LOPERAMIDE [Concomitant]
     Active Substance: LOPERAMIDE
     Dosage: DOSE FORM: 5
     Route: 048
     Dates: start: 20150415
  42. METOCLOPRAMIDE [Concomitant]
     Active Substance: METOCLOPRAMIDE
     Dosage: 10 MG
     Route: 065
     Dates: start: 20200619
  43. MOMETASONE [Concomitant]
     Active Substance: MOMETASONE
     Dosage: 2 PUFF
     Route: 065
     Dates: start: 20120925
  44. OMEPRAZOLE [Concomitant]
     Active Substance: OMEPRAZOLE
     Dosage: 20 MG, DOSE FORM:245
     Route: 048
     Dates: start: 20160212
  45. ONDANSETRON [Concomitant]
     Active Substance: ONDANSETRON
     Dosage: 8 MG, DOSE FORM: 245
     Route: 048
     Dates: start: 20160212
  46. OTOMIZE EAR SPRAY [Concomitant]
     Dosage: DOSE FORM: 400
     Route: 065
     Dates: start: 20181120, end: 20181127
  47. ACETAMINOPHEN [Concomitant]
     Active Substance: ACETAMINOPHEN
     Dosage: UNK
     Route: 065
     Dates: start: 2017
  48. MINERAL OIL [Concomitant]
     Active Substance: MINERAL OIL
     Dosage: DOSE FORM: 17
     Route: 061
     Dates: start: 20180403
  49. PEPPERMINT OIL [Concomitant]
     Active Substance: PEPPERMINT OIL
     Dosage: UNK
     Route: 065
     Dates: start: 20191219, end: 20191219
  50. CHLORPHENIRAMINE MALEATE [Concomitant]
     Active Substance: CHLORPHENIRAMINE MALEATE
     Dosage: 4 MG, DOSE FORM: 245
     Route: 048
     Dates: start: 20160307, end: 20160307
  51. PREDNISOLONE [Concomitant]
     Active Substance: PREDNISOLONE
     Dosage: 40 MG, DOSE FORM:245
     Route: 048
     Dates: start: 20181227, end: 20190101
  52. EVENING PRIMROSE OIL [OENOTHERA BIENNIS OIL] [Concomitant]
     Dosage: UNK
     Route: 065
     Dates: start: 2017
  53. ALBUTEROL [Concomitant]
     Active Substance: ALBUTEROL
     Dosage: 2 PUFF
     Route: 065
     Dates: start: 20000418
  54. SYMBICORT [Concomitant]
     Active Substance: BUDESONIDE\FORMOTEROL FUMARATE DIHYDRATE
     Dosage: 1 PUFF
     Route: 065
     Dates: start: 20151115, end: 20190719
  55. PROPYLENE GLYCOL [Concomitant]
     Active Substance: PROPYLENE GLYCOL

REACTIONS (3)
  - Hypokalaemia [Recovered/Resolved]
  - Diarrhoea [Recovered/Resolved]
  - Off label use [Unknown]

NARRATIVE: CASE EVENT DATE: 20211220
